FAERS Safety Report 16953655 (Version 2)
Quarter: 2020Q1

REPORT INFORMATION
  Report Type: Spontaneous
  Country: US (occurrence: US)
  Receive Date: 20191023
  Receipt Date: 20200123
  Transmission Date: 20200409
  Serious: No
  Sender: FDA-Public Use
  Company Number: US-DERMIRA, INC.-US-2019DER000493

PATIENT
  Age: 14 Year
  Sex: Female
  Weight: 40.82 kg

DRUGS (1)
  1. QBREXZA [Suspect]
     Active Substance: GLYCOPYRRONIUM TOSYLATE
     Indication: HYPERHIDROSIS
     Dosage: UNK, QD
     Route: 061
     Dates: start: 201909, end: 20190924

REACTIONS (4)
  - Mydriasis [Recovered/Resolved]
  - Vision blurred [Recovered/Resolved]
  - Off label use [Unknown]
  - Photophobia [Recovered/Resolved]

NARRATIVE: CASE EVENT DATE: 201909
